FAERS Safety Report 13363112 (Version 1)
Quarter: 2017Q1

REPORT INFORMATION
  Report Type: Spontaneous
  Country: US (occurrence: US)
  Receive Date: 20170322
  Receipt Date: 20170322
  Transmission Date: 20170429
  Serious: Yes (Other)
  Sender: FDA-Public Use
  Company Number: None

PATIENT
  Age: 62 Year
  Sex: Female
  Weight: 86.4 kg

DRUGS (1)
  1. BETASERON [Suspect]
     Active Substance: INTERFERON BETA-1B
     Indication: MULTIPLE SCLEROSIS
     Dosage: 0.3MG 1ML EVERY OTHER DAY SUBCUTANEOUSLY
     Route: 058
     Dates: start: 20161209

REACTIONS (1)
  - Seizure [None]

NARRATIVE: CASE EVENT DATE: 20161230
